APPROVED DRUG PRODUCT: DECADERM
Active Ingredient: DEXAMETHASONE
Strength: 0.1%
Dosage Form/Route: GEL;TOPICAL
Application: N013538 | Product #001
Applicant: MERCK AND CO INC
Approved: Approved Prior to Jan 1, 1982 | RLD: No | RS: No | Type: DISCN